FAERS Safety Report 5648398-0 (Version None)
Quarter: 2008Q1

REPORT INFORMATION
  Report Type: 
  Country: None (occurrence: None)
  Receive Date: 20080131
  Receipt Date: 20071204
  Transmission Date: 20080703
  Serious: No
  Sender: FDA-Public Use
  Company Number: US200712000975

PATIENT
  Age: 62 Year
  Sex: Female
  Weight: 67.1 kg

DRUGS (15)
  1. BYETTA [Suspect]
     Indication: TYPE 2 DIABETES MELLITUS
     Dosage: 5 UG, SUBCUTANEOUS; 10 UG, 2/D, SUBCUTANEOUS
     Route: 058
     Dates: start: 20070501, end: 20070501
  2. BYETTA [Suspect]
     Indication: TYPE 2 DIABETES MELLITUS
     Dosage: 5 UG, SUBCUTANEOUS; 10 UG, 2/D, SUBCUTANEOUS
     Route: 058
     Dates: start: 20070601, end: 20070601
  3. BYETTA [Suspect]
     Indication: TYPE 2 DIABETES MELLITUS
     Dosage: 5 UG, SUBCUTANEOUS; 10 UG, 2/D, SUBCUTANEOUS
     Route: 058
     Dates: start: 20071127
  4. METFORMIN HCL [Concomitant]
  5. ACTOS /USA/ (PIOGLITAZONE HYDROCHLORIDE) [Concomitant]
  6. SULAR [Concomitant]
  7. INDAPAMIDE [Concomitant]
  8. ALTACE [Concomitant]
  9. COZAAR [Concomitant]
  10. SINGULAIR [Concomitant]
  11. DETROL [Concomitant]
  12. PREMARIN (ESTROGENS CONJUGATED, MEDROGESTONE) [Concomitant]
  13. ... [Concomitant]
  14. ... [Concomitant]
  15. ... [Concomitant]

REACTIONS (2)
  - GALLBLADDER PAIN [None]
  - NAUSEA [None]
